FAERS Safety Report 8541680-9 (Version None)
Quarter: 2012Q3

REPORT INFORMATION
  Report Type: 
  Country: None (occurrence: None)
  Receive Date: 20120726
  Receipt Date: 20120719
  Transmission Date: 20120928
  Serious: Yes (Other)
  Sender: FDA-Public Use
  Company Number: PHHY2012FR062679

PATIENT
  Sex: Male
  Weight: 106 kg

DRUGS (6)
  1. METFORMIN HYDROCHLORIDE [Suspect]
     Dosage: 1 DF, BID
     Dates: start: 20100711
  2. METFORMIN HYDROCHLORIDE [Suspect]
     Dosage: 850 MG, BID
     Dates: start: 20071201, end: 20100711
  3. ZOCOR [Concomitant]
     Dosage: 20 MG, QD
     Dates: start: 20071101
  4. LMF237 [Suspect]
     Dosage: UNK
  5. PREVISCAN [Concomitant]
     Dosage: 2.25 DF, DAILY
     Dates: start: 20071101
  6. PREVISCAN [Concomitant]
     Dosage: 1 DF, DAILY

REACTIONS (1)
  - INTERMITTENT CLAUDICATION [None]
